FAERS Safety Report 24021297 (Version 2)
Quarter: 2024Q3

REPORT INFORMATION
  Report Type: Spontaneous
  Country: US (occurrence: US)
  Receive Date: 20240627
  Receipt Date: 20240807
  Transmission Date: 20241017
  Serious: No
  Sender: NEUROCRINE BIOSCIENCES
  Company Number: US-NEUROCRINE BIOSCIENCES INC.-2024NBI05964

PATIENT
  Age: 60 Year
  Sex: Female

DRUGS (7)
  1. INGREZZA [Suspect]
     Active Substance: VALBENAZINE
     Indication: Tardive dyskinesia
     Dosage: 40 MILLIGRAM
     Route: 065
     Dates: start: 20240520, end: 20240523
  2. REPATHA [Concomitant]
     Active Substance: EVOLOCUMAB
  3. ABILIFY [Concomitant]
     Active Substance: ARIPIPRAZOLE
     Indication: Schizophrenia
  4. AMBIEN [Concomitant]
     Active Substance: ZOLPIDEM TARTRATE
     Indication: Insomnia
  5. LORAZEPAM [Concomitant]
     Active Substance: LORAZEPAM
     Indication: Panic disorder
     Dosage: UNK, PRN
  6. LORAZEPAM [Concomitant]
     Active Substance: LORAZEPAM
     Indication: Anxiety
  7. SEROQUEL [Concomitant]
     Active Substance: QUETIAPINE FUMARATE
     Indication: Insomnia
     Dosage: UNK, PRN

REACTIONS (6)
  - Dyskinesia [Not Recovered/Not Resolved]
  - Nausea [Recovered/Resolved]
  - Vomiting [Recovered/Resolved]
  - Feeding disorder [Unknown]
  - Speech disorder [Unknown]
  - Pain [Unknown]

NARRATIVE: CASE EVENT DATE: 20240501
